FAERS Safety Report 24741691 (Version 1)
Quarter: 2024Q4

REPORT INFORMATION
  Report Type: Spontaneous
  Country: GB (occurrence: GB)
  Receive Date: 20241217
  Receipt Date: 20241217
  Transmission Date: 20250115
  Serious: Yes (Other)
  Sender: NOVAST LABORATORIES LTD
  Company Number: GB-NOVAST LABORATORIES INC.-2024NOV000339

PATIENT
  Age: 75 Year
  Sex: Male

DRUGS (4)
  1. FLUOROURACIL [Suspect]
     Active Substance: FLUOROURACIL
     Indication: Bladder cancer
     Dosage: 500 MG/M2/DAY INFUSION
     Route: 065
  2. NEOMYCIN [Concomitant]
     Active Substance: NEOMYCIN
     Indication: Bladder cancer
     Dosage: UNK
     Route: 065
  3. METFORMIN [Concomitant]
     Active Substance: METFORMIN HYDROCHLORIDE
     Indication: Type 2 diabetes mellitus
     Dosage: 500 MILLIGRAM TWICE DAILY
     Route: 065
  4. RAMIPRIL [Concomitant]
     Active Substance: RAMIPRIL
     Indication: Essential hypertension
     Dosage: 5 MILLIGRAM ONCE DAILY
     Route: 065

REACTIONS (2)
  - Optic ischaemic neuropathy [Recovered/Resolved]
  - Product use in unapproved indication [Unknown]
